FAERS Safety Report 17762133 (Version 2)
Quarter: 2022Q1

REPORT INFORMATION
  Report Type: Report from Study
  Country: CR (occurrence: CR)
  Receive Date: 20200508
  Receipt Date: 20220319
  Transmission Date: 20220424
  Serious: Yes (Other)
  Sender: FDA-Public Use
  Company Number: CR-NOVARTISPH-NVSC2020CR125402

PATIENT
  Sex: Female
  Weight: 65 kg

DRUGS (4)
  1. HYDROCHLOROTHIAZIDE\VALSARTAN [Suspect]
     Active Substance: HYDROCHLOROTHIAZIDE\VALSARTAN
     Indication: Hypertension
     Dosage: 1 DOSAGE FORM (STARTED IN 2018 OR 2019)
     Route: 065
     Dates: end: 2021
  2. LEVOTHYROXINE [Concomitant]
     Active Substance: LEVOTHYROXINE
     Indication: Product used for unknown indication
     Dosage: 1 DOSAGE FORM,  EMPTY STOMACH FOR MORE THAN 20 YEARS AGO
     Route: 065
  3. JANUMET [Concomitant]
     Active Substance: METFORMIN HYDROCHLORIDE\SITAGLIPTIN PHOSPHATE
     Indication: Diabetes mellitus
     Dosage: UNK,  FASTING
     Route: 065
     Dates: start: 2017
  4. ROSUVASTATIN CALCIUM [Concomitant]
     Active Substance: ROSUVASTATIN CALCIUM
     Indication: Product used for unknown indication
     Dosage: 1 DOSAGE FORM, QD
     Route: 065
     Dates: start: 2021

REACTIONS (4)
  - Hypothyroidism [Recovering/Resolving]
  - Hyperlipidaemia [Recovering/Resolving]
  - Blood glucose abnormal [Recovering/Resolving]
  - Glycosylated haemoglobin abnormal [Recovering/Resolving]
